FAERS Safety Report 7524650-9 (Version None)
Quarter: 2011Q2

REPORT INFORMATION
  Report Type: 
  Country: None (occurrence: None)
  Receive Date: 20110606
  Receipt Date: 20110531
  Transmission Date: 20111010
  Serious: Yes (Hospitalization, Other)
  Sender: FDA-Public Use
  Company Number: US-JNJFOC-20110509263

PATIENT
  Sex: Female
  Weight: 97.34 kg

DRUGS (1)
  1. LEVAQUIN [Suspect]
     Indication: LYMPHATIC DISORDER
     Route: 065
     Dates: start: 20100429

REACTIONS (4)
  - GAIT DISTURBANCE [None]
  - PAIN IN EXTREMITY [None]
  - STEVENS-JOHNSON SYNDROME [None]
  - DEPRESSION [None]
